FAERS Safety Report 12961169 (Version 1)
Quarter: 2016Q4

REPORT INFORMATION
  Report Type: Spontaneous
  Country: US (occurrence: US)
  Receive Date: 20161121
  Receipt Date: 20161121
  Transmission Date: 20170207
  Serious: No
  Sender: FDA-Public Use
  Company Number: US-PFIZER INC-2016480991

PATIENT
  Age: 47 Year
  Sex: Female

DRUGS (1)
  1. SUTENT [Suspect]
     Active Substance: SUNITINIB MALATE
     Indication: THYMOMA
     Dosage: 37.5 MG, DAILY
     Dates: start: 20160701, end: 20161107

REACTIONS (2)
  - Product use issue [Unknown]
  - Neoplasm progression [Unknown]
